FAERS Safety Report 21578419 (Version 1)
Quarter: 2022Q4

REPORT INFORMATION
  Report Type: Spontaneous
  Country: NO (occurrence: NO)
  Receive Date: 20221110
  Receipt Date: 20221110
  Transmission Date: 20230112
  Serious: Yes (Other)
  Sender: FDA-Public Use
  Company Number: NO-TEVA-2022-NO-2823683

PATIENT
  Age: 50 Year
  Sex: Female

DRUGS (5)
  1. TRAMADOL [Suspect]
     Active Substance: TRAMADOL
     Indication: Ankle operation
     Route: 065
     Dates: start: 20190204, end: 20190211
  2. TRAMADOL [Suspect]
     Active Substance: TRAMADOL
     Indication: Limb operation
  3. Paralgin forte [Concomitant]
     Indication: Product used for unknown indication
     Route: 065
  4. VITAMINS [Concomitant]
     Active Substance: VITAMINS
     Indication: Product used for unknown indication
     Route: 065
  5. MINERALS [Concomitant]
     Active Substance: MINERALS
     Indication: Product used for unknown indication
     Route: 065

REACTIONS (4)
  - Loose tooth [Unknown]
  - Periodontitis [Unknown]
  - Pain in jaw [Recovered/Resolved]
  - Toothache [Unknown]

NARRATIVE: CASE EVENT DATE: 20190201
